FAERS Safety Report 8979313 (Version 1)
Quarter: 2012Q4

REPORT INFORMATION
  Report Type: 
  Country: US (occurrence: US)
  Receive Date: 20121221
  Receipt Date: 20121221
  Transmission Date: 20130627
  Serious: Yes (Other)
  Sender: FDA-Public Use
  Company Number: US-ASTRAZENECA-2012SE93836

PATIENT
  Age: 45 Year
  Sex: Male

DRUGS (4)
  1. LISINOPRIL [Suspect]
     Indication: ATRIAL FLUTTER
     Route: 048
  2. BUTRANS [Suspect]
     Route: 065
     Dates: end: 20121207
  3. DILTIAZEM [Suspect]
     Indication: ATRIAL FLUTTER
     Route: 065
  4. ZOCOR [Suspect]
     Indication: ATRIAL FLUTTER
     Route: 065

REACTIONS (6)
  - Overdose [Unknown]
  - Disturbance in attention [Unknown]
  - Dyspnoea [Unknown]
  - Speech disorder [Unknown]
  - Gait disturbance [Unknown]
  - Drug withdrawal syndrome [Unknown]
